FAERS Safety Report 22676186 (Version 2)
Quarter: 2023Q4

REPORT INFORMATION
  Report Type: Spontaneous
  Country: AT (occurrence: AT)
  Receive Date: 20230706
  Receipt Date: 20231020
  Transmission Date: 20240109
  Serious: Yes (Other)
  Sender: FDA-Public Use
  Company Number: AT-PHARMAESSENTIA-AT-2023-PEC-001682

PATIENT
  Age: 48 Year
  Sex: Male

DRUGS (8)
  1. BESREMI [Suspect]
     Active Substance: ROPEGINTERFERON ALFA-2B-NJFT
     Indication: Polycythaemia vera
     Dosage: 125 MCG, Q2W
     Route: 058
     Dates: start: 20191220, end: 20200422
  2. BESREMI [Suspect]
     Active Substance: ROPEGINTERFERON ALFA-2B-NJFT
     Dosage: 175 MCG, Q2W
     Route: 058
     Dates: start: 20200422, end: 20200716
  3. BESREMI [Suspect]
     Active Substance: ROPEGINTERFERON ALFA-2B-NJFT
     Dosage: 175 MCG, Q2W
     Route: 058
     Dates: start: 20200921
  4. BESREMI [Suspect]
     Active Substance: ROPEGINTERFERON ALFA-2B-NJFT
     Dosage: 200 MCG, Q2W
     Route: 058
     Dates: start: 20210705
  5. BESREMI [Suspect]
     Active Substance: ROPEGINTERFERON ALFA-2B-NJFT
     Dosage: 200 MCG, Q2W
     Route: 058
     Dates: start: 20220721
  6. ASPIRIN [Concomitant]
     Active Substance: ASPIRIN
     Indication: Product used for unknown indication
     Dosage: UNK
     Route: 065
     Dates: start: 20191206
  7. HYDROXYUREA [Concomitant]
     Active Substance: HYDROXYUREA
     Indication: Product used for unknown indication
     Dosage: 500 MG
     Route: 065
     Dates: start: 20200808
  8. HYDROXYUREA [Concomitant]
     Active Substance: HYDROXYUREA
     Dosage: 1000 MG
     Route: 065
     Dates: start: 20200824, end: 20200921

REACTIONS (7)
  - Graves^ disease [Recovered/Resolved]
  - Intentional product use issue [Unknown]
  - Sleep disorder [Unknown]
  - Transaminases increased [Unknown]
  - Pruritus [Unknown]
  - Pruritus [Unknown]
  - Myalgia [Unknown]

NARRATIVE: CASE EVENT DATE: 20191220
